FAERS Safety Report 9887829 (Version 2)
Quarter: 2014Q3

REPORT INFORMATION
  Report Type: Spontaneous
  Country: US (occurrence: US)
  Receive Date: 20140211
  Receipt Date: 20140814
  Transmission Date: 20150326
  Serious: Yes (Hospitalization)
  Sender: FDA-Public Use
  Company Number: US-009507513-1402USA004278

PATIENT
  Sex: Female
  Weight: 63.95 kg

DRUGS (1)
  1. NUVARING [Suspect]
     Active Substance: ETHINYL ESTRADIOL\ETONOGESTREL
     Indication: CONTRACEPTION
     Dosage: UNK
     Route: 067
     Dates: start: 20131028, end: 20131118

REACTIONS (7)
  - Vaginal haemorrhage [Unknown]
  - Abdominal pain lower [Unknown]
  - Deep vein thrombosis [Unknown]
  - Blood fibrinogen decreased [Unknown]
  - Venous stent insertion [Unknown]
  - Urinary tract infection [Unknown]
  - Anaemia [Unknown]

NARRATIVE: CASE EVENT DATE: 20131117
